FAERS Safety Report 18557879 (Version 1)
Quarter: 2020Q4

REPORT INFORMATION
  Report Type: Spontaneous
  Country: GB (occurrence: GB)
  Receive Date: 20201130
  Receipt Date: 20201130
  Transmission Date: 20210114
  Serious: Yes (Other)
  Sender: FDA-Public Use
  Company Number: GB-TEVA-2020-GB-1853148

PATIENT
  Age: 67 Year
  Sex: Female
  Weight: 74.38 kg

DRUGS (13)
  1. CANNABIDIOL [Concomitant]
     Active Substance: CANNABIDIOL
     Dosage: CBD
  2. PASSIFLORA [Concomitant]
  3. PROGESTERONE. [Concomitant]
     Active Substance: PROGESTERONE
     Route: 061
  4. ETORICOXIB. [Concomitant]
     Active Substance: ETORICOXIB
     Dosage: 60 MG
  5. MAGNESIUM CITRATE. [Concomitant]
     Active Substance: MAGNESIUM CITRATE
  6. VALERIANA [Concomitant]
     Active Substance: VALERIAN
  7. IBUPROFEN. [Concomitant]
     Active Substance: IBUPROFEN
  8. GAVISCON [Concomitant]
     Active Substance: ALUMINUM HYDROXIDE\MAGNESIUM CARBONATE
  9. FYBOGEL [Concomitant]
     Active Substance: PLANTAGO OVATA SEED
  10. TAMOXIFEN CITRATE. [Suspect]
     Active Substance: TAMOXIFEN CITRATE
     Indication: BREAST CANCER
     Dosage: 20 MG
     Route: 048
     Dates: start: 200105
  11. VITAMIN D [Concomitant]
     Active Substance: VITAMIN D NOS
  12. MONASCUS PURPUREUS [Concomitant]
     Active Substance: RED YEAST
  13. MELATONIN [Concomitant]
     Active Substance: MELATONIN

REACTIONS (11)
  - Menopausal symptoms [Unknown]
  - Muscle spasms [Unknown]
  - Depression [Unknown]
  - Abnormal weight gain [Unknown]
  - Sleep disorder [Unknown]
  - Pain [Unknown]
  - Anxiety [Unknown]
  - Hot flush [Unknown]
  - Joint stiffness [Unknown]
  - Vulvovaginal dryness [Unknown]
  - Groin pain [Unknown]

NARRATIVE: CASE EVENT DATE: 20140514
